FAERS Safety Report 14208147 (Version 1)
Quarter: 2017Q4

REPORT INFORMATION
  Report Type: Spontaneous
  Country: US (occurrence: US)
  Receive Date: 20171120
  Receipt Date: 20171120
  Transmission Date: 20180321
  Serious: Yes (Other)
  Sender: FDA-Public Use
  Company Number: None

PATIENT
  Age: 57 Year
  Sex: Female
  Weight: 54 kg

DRUGS (1)
  1. ESTRADIOL. [Suspect]
     Active Substance: ESTRADIOL
     Dosage: ?          OTHER FREQUENCY:TWICE A WEEK; TOPICAL?
     Route: 061
     Dates: start: 20171001, end: 20171101

REACTIONS (1)
  - Application site burn [None]

NARRATIVE: CASE EVENT DATE: 20171001
